FAERS Safety Report 7708990-6 (Version None)
Quarter: 2011Q3

REPORT INFORMATION
  Report Type: 
  Country: None (occurrence: None)
  Receive Date: 20110825
  Receipt Date: 20110818
  Transmission Date: 20111222
  Serious: Yes (Hospitalization, Other)
  Sender: FDA-Public Use
  Company Number: US-BAYER-201037827NA

PATIENT
  Age: 31 Year
  Sex: Female
  Weight: 51 kg

DRUGS (5)
  1. NSAID'S [Concomitant]
  2. YAZ [Suspect]
     Indication: PRODUCT USED FOR UNKNOWN INDICATION
     Dosage: UNK
     Route: 048
     Dates: start: 20061201, end: 20081201
  3. ATENOLOL [Concomitant]
     Indication: MIGRAINE
  4. YAZ [Suspect]
     Dosage: UNK
     Dates: start: 20100501, end: 20100801
  5. MACROBID [Concomitant]
     Indication: CYSTITIS

REACTIONS (6)
  - ABDOMINAL PAIN UPPER [None]
  - CHOLECYSTITIS CHRONIC [None]
  - DYSPEPSIA [None]
  - ABDOMINAL DISTENSION [None]
  - CHOLELITHIASIS [None]
  - GALLBLADDER INJURY [None]
